FAERS Safety Report 4329934-3 (Version None)
Quarter: 2004Q1

REPORT INFORMATION
  Report Type: 
  Country: None (occurrence: None)
  Receive Date: 20040329
  Receipt Date: 20040312
  Transmission Date: 20041129
  Serious: Yes (Hospitalization, Disabling)
  Sender: FDA-Public Use
  Company Number: 2004UW04307

PATIENT
  Age: 56 Year
  Sex: Female

DRUGS (6)
  1. IRESSA [Suspect]
     Indication: LUNG NEOPLASM MALIGNANT
     Dosage: 250 MG QD PO
     Route: 048
     Dates: start: 20040206, end: 20040222
  2. FLONASE [Concomitant]
  3. VENTOLIN [Concomitant]
  4. VIOXX [Concomitant]
  5. ATIVAN [Concomitant]
  6. ANTIBIOTICS [Concomitant]

REACTIONS (9)
  - COUGH [None]
  - DIARRHOEA [None]
  - DISEASE PROGRESSION [None]
  - DYSPHAGIA [None]
  - DYSPNOEA [None]
  - LUNG NEOPLASM [None]
  - PLEURAL EFFUSION [None]
  - PNEUMONIA [None]
  - VOCAL CORD PARALYSIS [None]
